FAERS Safety Report 8434067-0 (Version None)
Quarter: 2012Q2

REPORT INFORMATION
  Report Type: 
  Country: None (occurrence: None)
  Receive Date: 20120613
  Receipt Date: 20120601
  Transmission Date: 20120825
  Serious: No
  Sender: FDA-Public Use
  Company Number: US-ASTRAZENECA-2012SE36959

PATIENT
  Age: 73 Year
  Sex: Male
  Weight: 88.5 kg

DRUGS (6)
  1. NEXIUM [Suspect]
     Indication: BARRETT'S OESOPHAGUS
     Route: 048
  2. NEXIUM [Suspect]
     Indication: ULCER HAEMORRHAGE
     Route: 048
  3. ASPIRIN [Concomitant]
  4. LOVAZA [Concomitant]
  5. NEXIUM [Suspect]
     Route: 048
     Dates: start: 20100101
  6. NEXIUM [Suspect]
     Route: 048
     Dates: start: 20100101

REACTIONS (4)
  - DRY MOUTH [None]
  - OFF LABEL USE [None]
  - BARRETT'S OESOPHAGUS [None]
  - DRY EYE [None]
